FAERS Safety Report 16764155 (Version 3)
Quarter: 2020Q1

REPORT INFORMATION
  Report Type: Spontaneous
  Country: US (occurrence: US)
  Receive Date: 20190902
  Receipt Date: 20200207
  Transmission Date: 20200409
  Serious: Yes (Other)
  Sender: FDA-Public Use
  Company Number: US-GW PHARMA-201908USGW3038

PATIENT

DRUGS (8)
  1. VALPROIC ACID. [Suspect]
     Active Substance: VALPROIC ACID
     Indication: PRODUCT USED FOR UNKNOWN INDICATION
     Dosage: 1000 MILLIGRAM, BID
     Route: 065
     Dates: start: 201902, end: 20190802
  2. EPIDIOLEX [Suspect]
     Active Substance: CANNABIDIOL
     Dosage: 7.67 MG/KG, 200 MILLIGRAM, BID
     Route: 048
     Dates: start: 20190802, end: 20190810
  3. VALPROIC ACID. [Suspect]
     Active Substance: VALPROIC ACID
     Dosage: UNK
     Route: 065
     Dates: start: 20190802, end: 201909
  4. ONFI [Concomitant]
     Active Substance: CLOBAZAM
     Dosage: DOSE REDUCED
     Route: 065
     Dates: start: 2019
  5. TOPIRAMATE. [Concomitant]
     Active Substance: TOPIRAMATE
     Indication: PRODUCT USED FOR UNKNOWN INDICATION
     Dosage: WEANED OFF
     Route: 065
     Dates: end: 2019
  6. EPIDIOLEX [Suspect]
     Active Substance: CANNABIDIOL
     Indication: EPILEPSY
     Dosage: 11.54 MG/KG, 300 MILLIGRAM, BID
     Route: 048
     Dates: start: 20190530, end: 20190802
  7. VALPROIC ACID. [Suspect]
     Active Substance: VALPROIC ACID
     Dosage: DOSE REDUCED TO 375/500
     Route: 065
     Dates: start: 201909
  8. ONFI [Concomitant]
     Active Substance: CLOBAZAM
     Indication: PRODUCT USED FOR UNKNOWN INDICATION
     Dosage: UNK
     Route: 065
     Dates: end: 2019

REACTIONS (9)
  - Haemolytic anaemia [Recovered/Resolved]
  - Chromaturia [Recovered/Resolved]
  - Diarrhoea [Recovered/Resolved]
  - Anaemia macrocytic [Not Recovered/Not Resolved]
  - Abdominal discomfort [Unknown]
  - Urine odour abnormal [Recovered/Resolved]
  - Enuresis [Unknown]
  - Thrombocytopenia [Not Recovered/Not Resolved]
  - Vomiting [Recovered/Resolved]

NARRATIVE: CASE EVENT DATE: 2019
